FAERS Safety Report 4834547-0 (Version None)
Quarter: 2005Q4

REPORT INFORMATION
  Report Type: 
  Country: None (occurrence: None)
  Receive Date: 20051122
  Receipt Date: 20050225
  Transmission Date: 20060501
  Serious: No
  Sender: FDA-Public Use
  Company Number: US-BRISTOL-MYERS SQUIBB COMPANY-12877353

PATIENT
  Age: 76 Year
  Sex: Female
  Weight: 68 kg

DRUGS (4)
  1. PRAVACHOL [Suspect]
     Indication: BLOOD CHOLESTEROL INCREASED
     Dosage: 1/2 TABLET DAILY
     Route: 048
  2. SYNTHROID [Concomitant]
     Indication: THYROID DISORDER
  3. DIOVAN [Concomitant]
     Indication: HYPERTENSION
  4. FOSAMAX [Concomitant]
     Indication: OSTEOPOROSIS PROPHYLAXIS

REACTIONS (3)
  - ARTHRALGIA [None]
  - MYALGIA [None]
  - STOMACH DISCOMFORT [None]
